FAERS Safety Report 17241872 (Version 1)
Quarter: 2019Q4

REPORT INFORMATION
  Report Type: Spontaneous
  Country: US (occurrence: US)
  Receive Date: 20191212
  Receipt Date: 20191212
  Transmission Date: 20200122
  Serious: Yes (Hospitalization)
  Sender: FDA-Public Use
  Company Number: None

PATIENT
  Age: 21 Year
  Sex: Female

DRUGS (8)
  1. TOBRAMYCIN. [Concomitant]
     Active Substance: TOBRAMYCIN
  2. ALBUTEROL. [Concomitant]
     Active Substance: ALBUTEROL
  3. COLISTIMETHATE 150MG VIAL [Suspect]
     Active Substance: COLISTIMETHATE SODIUM
  4. AZITHROCYCIN [Concomitant]
  5. COLISTIMETHATE 150MG VIAL [Suspect]
     Active Substance: COLISTIMETHATE SODIUM
     Indication: CYSTIC FIBROSIS
     Route: 055
  6. PULMOZYME [Concomitant]
     Active Substance: DORNASE ALFA
  7. ADVAIR HFA [Concomitant]
     Active Substance: FLUTICASONE PROPIONATE\SALMETEROL XINAFOATE
  8. TACROLIMUS. [Concomitant]
     Active Substance: TACROLIMUS

REACTIONS (1)
  - Seizure [None]

NARRATIVE: CASE EVENT DATE: 20191125
